FAERS Safety Report 23260243 (Version 1)
Quarter: 2023Q4

REPORT INFORMATION
  Report Type: Spontaneous
  Country: US (occurrence: US)
  Receive Date: 20231204
  Receipt Date: 20231204
  Transmission Date: 20240110
  Serious: No
  Sender: FDA-Public Use
  Company Number: US-JNJFOC-20231152275

PATIENT
  Sex: Male

DRUGS (2)
  1. IMODIUM MULTI-SYMPTOM RELIEF [Suspect]
     Active Substance: DIMETHICONE\LOPERAMIDE HYDROCHLORIDE
     Indication: Diarrhoea
     Dosage: 2 PILLS FOR THE FIRST DOSE THEN AFTER HAVING A DIARRHEA BOWEL MOVEMENT HAD 1 PILL, TOTAL OF 3 FOR ON
     Route: 065
     Dates: start: 20231113
  2. IMODIUM MULTI-SYMPTOM RELIEF [Suspect]
     Active Substance: DIMETHICONE\LOPERAMIDE HYDROCHLORIDE
     Dosage: 2 PILLS FOR THE FIRST DOSE THEN AFTER HAVING A DIARRHEA BOWEL MOVEMENT HAD 1 PILL, TOTAL OF 3 FOR ON
     Route: 065
     Dates: start: 20231113

REACTIONS (1)
  - Infrequent bowel movements [Not Recovered/Not Resolved]

NARRATIVE: CASE EVENT DATE: 20231114
